FAERS Safety Report 6965594-0 (Version None)
Quarter: 2010Q3

REPORT INFORMATION
  Report Type: 
  Country: None (occurrence: None)
  Receive Date: 20100903
  Receipt Date: 20100826
  Transmission Date: 20110219
  Serious: Yes (Other)
  Sender: FDA-Public Use
  Company Number: US-ROCHE-707341

PATIENT
  Sex: Female
  Weight: 45.8 kg

DRUGS (1)
  1. CAPECITABINE [Suspect]
     Indication: BREAST CANCER
     Dosage: 7 DAYS ON 7 DAYS OFF
     Route: 048
     Dates: start: 20091201, end: 20100408

REACTIONS (1)
  - MALIGNANT NEOPLASM PROGRESSION [None]
